FAERS Safety Report 6875507-8 (Version None)
Quarter: 2010Q3

REPORT INFORMATION
  Report Type: 
  Country: None (occurrence: None)
  Receive Date: 20100727
  Receipt Date: 20100715
  Transmission Date: 20110219
  Serious: Yes (Hospitalization)
  Sender: FDA-Public Use
  Company Number: US-JNJFOC-20100705133

PATIENT
  Age: 49 Year
  Sex: Female
  Weight: 43.55 kg

DRUGS (1)
  1. DORIBAX [Suspect]
     Indication: PANCREATITIS
     Route: 041

REACTIONS (2)
  - OVERDOSE [None]
  - RENAL FAILURE [None]
